FAERS Safety Report 11431023 (Version 1)
Quarter: 2015Q3

REPORT INFORMATION
  Report Type: Spontaneous
  Country: US (occurrence: US)
  Receive Date: 20150828
  Receipt Date: 20150828
  Transmission Date: 20151125
  Serious: Yes (Hospitalization)
  Sender: FDA-Public Use
  Company Number: US-AMGEN-USASP2015087111

PATIENT
  Age: 32 Year
  Sex: Female

DRUGS (1)
  1. NPLATE [Suspect]
     Active Substance: ROMIPLOSTIM
     Indication: PRODUCT USED FOR UNKNOWN INDICATION
     Dosage: UNK, UNK
     Route: 065

REACTIONS (7)
  - Hypoaesthesia [Unknown]
  - Disease recurrence [Unknown]
  - Limb discomfort [Unknown]
  - Platelet count abnormal [Unknown]
  - Headache [Unknown]
  - Haemorrhage [Unknown]
  - Asthenia [Unknown]
